FAERS Safety Report 15167857 (Version 1)
Quarter: 2018Q3

REPORT INFORMATION
  Report Type: Spontaneous
  Country: US (occurrence: US)
  Receive Date: 20180621
  Receipt Date: 20180621
  Transmission Date: 20181010
  Serious: No
  Sender: FDA-Public Use
  Company Number: None

PATIENT
  Age: 60 Year
  Sex: Female
  Weight: 64.86 kg

DRUGS (8)
  1. THYROID [Concomitant]
     Active Substance: LEVOTHYROXINE\LIOTHYRONINE
  2. FLUTICASONE PROPIONATE 50MCG/ACT SPR APOT GENERIC FOR FIONASE [Suspect]
     Active Substance: FLUTICASONE PROPIONATE
     Indication: HYPERSENSITIVITY
     Dosage: ?          QUANTITY:1 SPRAY(S);?
     Route: 055
  3. COMPLETE MULTI VITAMIN [Concomitant]
  4. LIPITOR [Concomitant]
     Active Substance: ATORVASTATIN CALCIUM
  5. PAROXETINE. [Concomitant]
     Active Substance: PAROXETINE
  6. LISINOPRIL. [Concomitant]
     Active Substance: LISINOPRIL
  7. ALPRAZOLAM. [Concomitant]
     Active Substance: ALPRAZOLAM
  8. CALCIUM WITH VITAMIND [Concomitant]

REACTIONS (9)
  - Cough [None]
  - Ear pain [None]
  - Product use issue [None]
  - Product contamination physical [None]
  - Retching [None]
  - Fall [None]
  - Headache [None]
  - Productive cough [None]
  - Loss of consciousness [None]

NARRATIVE: CASE EVENT DATE: 20180113
